FAERS Safety Report 17258568 (Version 1)
Quarter: 2020Q1

REPORT INFORMATION
  Report Type: Spontaneous
  Country: US (occurrence: US)
  Receive Date: 20200110
  Receipt Date: 20200110
  Transmission Date: 20200409
  Serious: No
  Sender: FDA-Public Use
  Company Number: US-ELI_LILLY_AND_COMPANY-US202001001641

PATIENT
  Age: 48 Year
  Sex: Male

DRUGS (6)
  1. BASAGLAR [Suspect]
     Active Substance: INSULIN GLARGINE
     Dosage: 34 UNK
     Route: 065
  2. BASAGLAR [Suspect]
     Active Substance: INSULIN GLARGINE
     Indication: PRODUCT USED FOR UNKNOWN INDICATION
     Dosage: 34 U, DAILY
     Route: 065
  3. BASAGLAR [Suspect]
     Active Substance: INSULIN GLARGINE
     Dosage: 34 UNK
  4. BASAGLAR [Suspect]
     Active Substance: INSULIN GLARGINE
     Dosage: 34 UNK
     Route: 065
  5. METFORMIN [Concomitant]
     Active Substance: METFORMIN HYDROCHLORIDE
  6. BASAGLAR [Suspect]
     Active Substance: INSULIN GLARGINE
     Dosage: 34 UNK
     Route: 065

REACTIONS (2)
  - Injection site haemorrhage [Unknown]
  - Hypoacusis [Unknown]
